FAERS Safety Report 12268778 (Version 1)
Quarter: 2016Q2

REPORT INFORMATION
  Report Type: Spontaneous
  Country: CN (occurrence: CN)
  Receive Date: 20160414
  Receipt Date: 20160414
  Transmission Date: 20160815
  Serious: Yes (Disabling, Other)
  Sender: FDA-Public Use
  Company Number: CN-PFIZER INC-2016207471

PATIENT
  Age: 84 Year
  Sex: Male
  Weight: 44 kg

DRUGS (4)
  1. LAILIXIN [Suspect]
     Active Substance: LEVOFLOXACIN
     Indication: LUNG INFECTION
     Dosage: 250 ML, 1X/DAY
     Route: 041
     Dates: start: 20151013, end: 20151020
  2. SODIUM CHLORIDE. [Concomitant]
     Active Substance: SODIUM CHLORIDE
     Indication: VEHICLE SOLUTION USE
     Dosage: 100 ML, 1X/DAY
     Route: 041
     Dates: start: 20151002, end: 20151014
  3. LIPITOR [Suspect]
     Active Substance: ATORVASTATIN CALCIUM
     Indication: CEREBRAL INFARCTION
     Dosage: 20 MG, 1X/DAY
     Route: 048
     Dates: start: 20151002, end: 20151019
  4. ALPROSTADIL. [Suspect]
     Active Substance: ALPROSTADIL
     Indication: CEREBRAL INFARCTION
     Dosage: 10 UG, 1X/DAY
     Route: 041
     Dates: start: 20151002, end: 20151014

REACTIONS (2)
  - Hepatic function abnormal [Not Recovered/Not Resolved]
  - Lung infection [Unknown]

NARRATIVE: CASE EVENT DATE: 20151013
